FAERS Safety Report 24067910 (Version 2)
Quarter: 2024Q3

REPORT INFORMATION
  Report Type: Spontaneous
  Country: FR (occurrence: FR)
  Receive Date: 20240710
  Receipt Date: 20240806
  Transmission Date: 20241016
  Serious: Yes (Other)
  Sender: GLAXOSMITHKLINE
  Company Number: None

PATIENT

DRUGS (13)
  1. VALACYCLOVIR HYDROCHLORIDE [Suspect]
     Active Substance: VALACYCLOVIR HYDROCHLORIDE
     Indication: Prophylaxis
     Dosage: 500 MG, BID (1 TABLET MORNING AND EVENING   )
     Route: 065
  2. VALACYCLOVIR HYDROCHLORIDE [Suspect]
     Active Substance: VALACYCLOVIR HYDROCHLORIDE
     Dosage: 1000 MG, QD
     Route: 048
  3. BACTRIM [Suspect]
     Active Substance: SULFAMETHOXAZOLE\TRIMETHOPRIM
     Indication: Prophylaxis
     Dosage: 3 DF, WE
     Route: 048
  4. CHOLECALCIFEROL [Suspect]
     Active Substance: CHOLECALCIFEROL
     Indication: Vitamin D deficiency
     Dosage: 50000 IU, MO
     Route: 048
  5. LENALIDOMIDE [Suspect]
     Active Substance: LENALIDOMIDE
     Indication: Plasma cell myeloma
     Dosage: 5 MG
     Route: 065
  6. LENALIDOMIDE [Suspect]
     Active Substance: LENALIDOMIDE
     Dosage: 105 MG, CYCLICAL
     Route: 048
     Dates: start: 20240531, end: 20240612
  7. ELIQUIS [Suspect]
     Active Substance: APIXABAN
     Indication: Anticoagulant therapy
     Dosage: 5 MG, BID (TABLET MORNING AND EVENING   )
     Route: 048
  8. ELIQUIS [Suspect]
     Active Substance: APIXABAN
     Dosage: 10 MG, QD
     Route: 048
  9. DARZALEX [Suspect]
     Active Substance: DARATUMUMAB
     Indication: Plasma cell myeloma
     Dosage: 1 DF, MO
     Route: 058
     Dates: start: 20210531, end: 20240612
  10. PREGABALIN [Suspect]
     Active Substance: PREGABALIN
     Indication: Peripheral sensorimotor neuropathy
     Dosage: UNK
     Route: 048
     Dates: start: 20200807
  11. PREGABALIN [Suspect]
     Active Substance: PREGABALIN
     Dosage: 300 MG
     Route: 065
  12. LEUCOVORIN CALCIUM [Suspect]
     Active Substance: LEUCOVORIN CALCIUM
     Indication: Haematotoxicity
     Dosage: 1 DF, WE
     Route: 048
  13. LEUCOVORIN CALCIUM [Suspect]
     Active Substance: LEUCOVORIN CALCIUM
     Dosage: 25 MG, WE (1 TABLET ON SUNDAY)
     Route: 065

REACTIONS (1)
  - Leukoencephalopathy [Not Recovered/Not Resolved]

NARRATIVE: CASE EVENT DATE: 20240612
